FAERS Safety Report 15426767 (Version 5)
Quarter: 2019Q3

REPORT INFORMATION
  Report Type: Report from Study
  Country: CO (occurrence: CO)
  Receive Date: 20180925
  Receipt Date: 20190805
  Transmission Date: 20191004
  Serious: Yes (Other)
  Sender: FDA-Public Use
  Company Number: CO-INCYTE CORPORATION-2018IN009742

PATIENT

DRUGS (4)
  1. JAKAVI [Suspect]
     Active Substance: RUXOLITINIB
     Indication: POLYCYTHAEMIA VERA
     Dosage: 30 MG, QD
     Route: 048
     Dates: start: 2016
  2. JAKAVI [Suspect]
     Active Substance: RUXOLITINIB
     Dosage: 20 MG, QD
     Route: 048
  3. HYDROXYUREA. [Suspect]
     Active Substance: HYDROXYUREA
     Indication: POLYCYTHAEMIA VERA
     Dosage: UNK
     Route: 065
  4. ASPIRIN. [Concomitant]
     Active Substance: ASPIRIN
     Indication: PRODUCT USED FOR UNKNOWN INDICATION
     Dosage: 100 MG, QD
     Route: 048

REACTIONS (19)
  - Haematoma [Recovering/Resolving]
  - Platelet count increased [Unknown]
  - Thrombosis [Unknown]
  - Inappropriate schedule of product administration [Unknown]
  - Fall [Recovered/Resolved]
  - Headache [Unknown]
  - Polycythaemia vera [Unknown]
  - Eye injury [Unknown]
  - Haemoglobin decreased [Unknown]
  - Recurrent cancer [Unknown]
  - Recurrent cancer [Recovered/Resolved]
  - Malaise [Unknown]
  - Contusion [Unknown]
  - Feeling abnormal [Unknown]
  - Epistaxis [Unknown]
  - Gastritis [Unknown]
  - Discomfort [Unknown]
  - Dizziness [Unknown]
  - Movement disorder [Not Recovered/Not Resolved]

NARRATIVE: CASE EVENT DATE: 20180906
